FAERS Safety Report 8154625-0 (Version None)
Quarter: 2012Q1

REPORT INFORMATION
  Report Type: 
  Country: None (occurrence: None)
  Receive Date: 20120202
  Receipt Date: 20120123
  Transmission Date: 20120608
  Serious: Yes (Other)
  Sender: FDA-Public Use
  Company Number: CA-145188

PATIENT
  Sex: Female

DRUGS (10)
  1. WINRHO SD [Suspect]
  2. WINRHO [Suspect]
  3. WINRHO SD [Suspect]
     Indication: PROPHYLAXIS AGAINST RH ISOIMMUNISATION
     Dosage: SEE IMAGE
     Route: 042
     Dates: start: 19960801, end: 19960801
  4. WINRHO SD [Suspect]
     Indication: PROPHYLAXIS AGAINST RH ISOIMMUNISATION
     Dosage: SEE IMAGE
     Route: 042
     Dates: start: 19960429, end: 19960429
  5. WINRHO SD [Suspect]
     Indication: PROPHYLAXIS AGAINST RH ISOIMMUNISATION
     Dosage: SEE IMAGE
     Route: 042
     Dates: start: 19940610, end: 19940610
  6. WINRHO SD [Suspect]
     Indication: PROPHYLAXIS AGAINST RH ISOIMMUNISATION
     Dosage: SEE IMAGE
     Route: 042
     Dates: start: 19960801, end: 19960801
  7. WINRHO SD [Suspect]
  8. WINRHO [Suspect]
     Dosage: SEE IMAGE
     Route: 042
     Dates: start: 19930402, end: 19930402
  9. WINRHO [Suspect]
     Dosage: SEE IMAGE
     Route: 042
     Dates: start: 19930118, end: 19930118
  10. WINRHO SD [Suspect]

REACTIONS (3)
  - HEPATITIS C [None]
  - HEPATITIS C VIRUS TEST POSITIVE [None]
  - MATERNAL EXPOSURE DURING DELIVERY [None]
